FAERS Safety Report 6992007-5 (Version None)
Quarter: 2010Q3

REPORT INFORMATION
  Report Type: 
  Country: None (occurrence: None)
  Receive Date: 20100917
  Receipt Date: 20100910
  Transmission Date: 20110219
  Serious: Yes (Other)
  Sender: FDA-Public Use
  Company Number: US-PFIZER INC-2010098506

PATIENT
  Age: 94 Year
  Sex: Female

DRUGS (1)
  1. TOVIAZ [Suspect]
     Dosage: 4 MG, UNK

REACTIONS (6)
  - CYSTITIS [None]
  - DRUG INEFFECTIVE [None]
  - MALAISE [None]
  - POLLAKIURIA [None]
  - URINARY INCONTINENCE [None]
  - URINE OUTPUT INCREASED [None]
